FAERS Safety Report 13454208 (Version 1)
Quarter: 2017Q2

REPORT INFORMATION
  Report Type: Spontaneous
  Country: US (occurrence: US)
  Receive Date: 20170418
  Receipt Date: 20170418
  Transmission Date: 20170830
  Serious: No
  Sender: FDA-Public Use
  Company Number: US-ALLERGAN-1670072US

PATIENT
  Age: 50 Year
  Sex: Female

DRUGS (3)
  1. LATISSE [Suspect]
     Active Substance: BIMATOPROST
     Indication: GROWTH OF EYELASHES
     Dosage: 2 GTT, QHS
     Route: 061
     Dates: start: 20160919, end: 20160922
  2. LATISSE [Suspect]
     Active Substance: BIMATOPROST
     Dosage: 2 GTT, QHS
     Route: 061
     Dates: start: 20160925, end: 20160926
  3. LATISSE [Suspect]
     Active Substance: BIMATOPROST
     Dosage: 2 GTT, QHS
     Route: 061
     Dates: start: 201409, end: 20160918

REACTIONS (5)
  - Eye irritation [Recovered/Resolved]
  - Dry eye [Recovered/Resolved]
  - Hypersensitivity [Recovered/Resolved]
  - Eyelid ptosis [Recovered/Resolved]
  - Ocular hyperaemia [Recovered/Resolved]

NARRATIVE: CASE EVENT DATE: 20160920
